FAERS Safety Report 7540898-1 (Version None)
Quarter: 2011Q2

REPORT INFORMATION
  Report Type: 
  Country: None (occurrence: None)
  Receive Date: 20110610
  Receipt Date: 20110606
  Transmission Date: 20111010
  Serious: Yes (Other)
  Sender: FDA-Public Use
  Company Number: US-PFIZER INC-2011096136

PATIENT
  Sex: Female

DRUGS (9)
  1. PREMARIN [Suspect]
     Indication: VULVOVAGINAL BURNING SENSATION
     Dosage: 0.625 MG, 1 1/2 OZ (COMBO) TUBE
  2. PREMARIN [Suspect]
     Indication: TRICHOMONIASIS
  3. SERTRALINE [Concomitant]
     Dosage: 25 MG, 1X/DAY
  4. TRAZODONE [Concomitant]
     Dosage: 50 MG, 1X/DAY
  5. ZYPREXA [Concomitant]
     Dosage: 5 MG, 1X/DAY
  6. SEROQUEL [Concomitant]
     Dosage: DAILY
  7. ZOCOR [Concomitant]
     Dosage: 20 MG, 1X/DAY
  8. PREMARIN [Suspect]
     Indication: OFF LABEL USE
     Dosage: UNK
     Route: 067
     Dates: start: 20110501, end: 20110519
  9. SYNTHROID [Concomitant]
     Dosage: 125 UG, 1X/DAY

REACTIONS (3)
  - TRICHOMONIASIS [None]
  - DRUG INEFFECTIVE [None]
  - MALAISE [None]
